FAERS Safety Report 22218680 (Version 5)
Quarter: 2024Q2

REPORT INFORMATION
  Report Type: Spontaneous
  Country: US (occurrence: US)
  Receive Date: 20230417
  Receipt Date: 20240403
  Transmission Date: 20240716
  Serious: No
  Sender: FDA-Public Use
  Company Number: US-PFIZER INC-PV202300067716

PATIENT
  Age: 66 Year
  Sex: Female

DRUGS (3)
  1. BOSULIF [Suspect]
     Active Substance: BOSUTINIB MONOHYDRATE
     Dosage: 400 MG
  2. BOSULIF [Suspect]
     Active Substance: BOSUTINIB MONOHYDRATE
     Dosage: 300 MG, DAILY (TAKE 3 TABLETS (300 MG TOTAL) BY MOUTH DAILY WITH BREAKFAST. TAKE WITH FOOD)
     Route: 048
  3. BOSULIF [Suspect]
     Active Substance: BOSUTINIB MONOHYDRATE
     Dosage: TAKE 4 TABLETS (400 MG TOTAL) BY MOUTH DAILY WITH BREAKFAST
     Route: 048

REACTIONS (1)
  - Musculoskeletal disorder [Unknown]
